FAERS Safety Report 6020937-X (Version None)
Quarter: 2008Q4

REPORT INFORMATION
  Report Type: 
  Country: None (occurrence: None)
  Receive Date: 20081229
  Receipt Date: 20081201
  Transmission Date: 20090506
  Serious: No
  Sender: FDA-Public Use
  Company Number: CH-ABBOTT-08P-151-0487062-00

PATIENT
  Sex: Male

DRUGS (1)
  1. KLACID ONE [Suspect]
     Indication: BRONCHITIS
     Dosage: 1 - 500 MILLIGRAM TABLET
     Dates: start: 20080821, end: 20080828

REACTIONS (1)
  - HEARING IMPAIRED [None]
